FAERS Safety Report 24415538 (Version 1)
Quarter: 2024Q4

REPORT INFORMATION
  Report Type: Spontaneous
  Country: GB (occurrence: GB)
  Receive Date: 20241009
  Receipt Date: 20241009
  Transmission Date: 20250115
  Serious: Yes (Hospitalization, Other)
  Sender: GRANULES INDIA
  Company Number: GB-GRANULES-GB-2024GRALIT00437

PATIENT
  Age: 77 Year
  Sex: Male

DRUGS (1)
  1. METFORMIN HYDROCHLORIDE [Suspect]
     Active Substance: METFORMIN HYDROCHLORIDE
     Indication: Type 2 diabetes mellitus
     Route: 065

REACTIONS (4)
  - Ketoacidosis [Recovered/Resolved]
  - Hyperlactacidaemia [Recovered/Resolved]
  - Hypoglycaemia [Recovered/Resolved]
  - Intentional product misuse [Unknown]
